FAERS Safety Report 21175057 (Version 2)
Quarter: 2022Q3

REPORT INFORMATION
  Report Type: Spontaneous
  Country: JP (occurrence: JP)
  Receive Date: 20220805
  Receipt Date: 20220818
  Transmission Date: 20221027
  Serious: Yes (Hospitalization)
  Sender: FDA-Public Use
  Company Number: JP-KOREA IPSEN Pharma-2022-22055

PATIENT

DRUGS (1)
  1. LANREOTIDE ACETATE [Suspect]
     Active Substance: LANREOTIDE ACETATE
     Indication: Acromegaly
     Dosage: DOSE AND FREQUENCY NOT REPORTED
     Route: 058

REACTIONS (1)
  - Cerebral infarction [Unknown]
